FAERS Safety Report 6169565-6 (Version None)
Quarter: 2009Q2

REPORT INFORMATION
  Report Type: 
  Country: None (occurrence: None)
  Receive Date: 20090428
  Receipt Date: 20090316
  Transmission Date: 20091009
  Serious: No
  Sender: FDA-Public Use
  Company Number: US-BAYER-200916023NA

PATIENT
  Sex: Male

DRUGS (7)
  1. LEVITRA [Suspect]
     Indication: ERECTILE DYSFUNCTION
     Dosage: TOTAL DAILY DOSE: 20 MG  UNIT DOSE: 20 MG
     Route: 048
     Dates: start: 20090313, end: 20090313
  2. EFFEXOR [Concomitant]
  3. LAMICTAL [Concomitant]
  4. SEROQUEL [Concomitant]
  5. LIPITOR [Concomitant]
  6. LOPRESSOR [Concomitant]
  7. CALCIUM WITH VITAMIN D [Concomitant]

REACTIONS (2)
  - ERECTILE DYSFUNCTION [None]
  - PREMATURE EJACULATION [None]
